FAERS Safety Report 4315271-X (Version None)
Quarter: 2004Q1

REPORT INFORMATION
  Report Type: 
  Country: None (occurrence: None)
  Receive Date: 20040309
  Receipt Date: 20040227
  Transmission Date: 20041129
  Serious: Yes (Other)
  Sender: FDA-Public Use
  Company Number: US068483

PATIENT

DRUGS (1)
  1. ENBREL [Suspect]

REACTIONS (1)
  - POLYNEUROPATHY [None]
